FAERS Safety Report 5393939-4 (Version None)
Quarter: 2007Q3

REPORT INFORMATION
  Report Type: 
  Country: None (occurrence: None)
  Receive Date: 20070723
  Receipt Date: 20061128
  Transmission Date: 20080115
  Serious: No
  Sender: FDA-Public Use
  Company Number: A0628176A

PATIENT
  Age: 83 Year
  Sex: Female
  Weight: 100 kg

DRUGS (5)
  1. AVANDIA [Suspect]
     Indication: DRUG USE FOR UNKNOWN INDICATION
     Route: 048
  2. AMARYL [Concomitant]
  3. LANTUS [Concomitant]
  4. BETA BLOCKER [Concomitant]
  5. OTHER MEDICATIONS [Concomitant]

REACTIONS (2)
  - FOOD CRAVING [None]
  - WEIGHT INCREASED [None]
